FAERS Safety Report 8392759-6 (Version None)
Quarter: 2012Q2

REPORT INFORMATION
  Report Type: 
  Country: None (occurrence: None)
  Receive Date: 20120529
  Receipt Date: 20111003
  Transmission Date: 20120825
  Serious: No
  Sender: FDA-Public Use
  Company Number: US-MYLANLABS-2011S1020782

PATIENT
  Sex: Female

DRUGS (2)
  1. AMITRIPTYLINE HCL [Suspect]
     Dates: start: 20110820
  2. AMITRIPTYLINE HCL [Suspect]
     Dates: end: 20111001

REACTIONS (3)
  - ALOPECIA [None]
  - MUSCLE SPASMS [None]
  - DRUG WITHDRAWAL SYNDROME [None]
